FAERS Safety Report 8415468-3 (Version None)
Quarter: 2012Q2

REPORT INFORMATION
  Report Type: 
  Country: None (occurrence: None)
  Receive Date: 20120606
  Receipt Date: 20120604
  Transmission Date: 20120825
  Serious: Yes (Death, Other)
  Sender: FDA-Public Use
  Company Number: PHHY2012DE047926

PATIENT
  Age: 59 Year
  Sex: Male

DRUGS (1)
  1. EXJADE [Suspect]
     Indication: IRON OVERLOAD
     Dosage: 500 MG, PER DAY
     Route: 048
     Dates: start: 20120301, end: 20120501

REACTIONS (2)
  - DEATH [None]
  - PNEUMONIA [None]
